FAERS Safety Report 26041547 (Version 1)
Quarter: 2025Q4

REPORT INFORMATION
  Report Type: Spontaneous
  Country: GB (occurrence: GB)
  Receive Date: 20251113
  Receipt Date: 20251113
  Transmission Date: 20260118
  Serious: Yes (Life-Threatening, Other)
  Sender: PFIZER
  Company Number: None

PATIENT
  Age: 43 Year
  Sex: Male
  Weight: 68 kg

DRUGS (1)
  1. RIMEGEPANT [Suspect]
     Active Substance: RIMEGEPANT
     Dosage: ONE TO BE TAKEN ON ALTERNATE DAYS AS REQUIRED, RIMEGEPANT 75MG ORAL LYOPHILISATES SUGAR FREE
     Dates: start: 20251022

REACTIONS (3)
  - Ventricular tachycardia [Not Recovered/Not Resolved]
  - Atrial fibrillation [Unknown]
  - Palpitations [Not Recovered/Not Resolved]

NARRATIVE: CASE EVENT DATE: 20251024
